FAERS Safety Report 7313788-7 (Version None)
Quarter: 2011Q1

REPORT INFORMATION
  Report Type: 
  Country: None (occurrence: None)
  Receive Date: 20110216
  Receipt Date: 20110216
  Transmission Date: 20110831
  Serious: No
  Sender: FDA-Public Use
  Company Number: None

PATIENT
  Age: 58 Year
  Sex: Female
  Weight: 51.7101 kg

DRUGS (3)
  1. VIVELLE-DOT [Suspect]
     Indication: AUTONOMIC NERVOUS SYSTEM IMBALANCE
     Dosage: 1 PATCH TWICE WEEKLY TRANSDERMAL
     Route: 062
     Dates: start: 20090801, end: 20110215
  2. ALEDRONATE [Concomitant]
  3. PROMETRIUM [Concomitant]

REACTIONS (5)
  - SKIN BURNING SENSATION [None]
  - ERYTHEMA [None]
  - APPLICATION SITE REACTION [None]
  - SWELLING [None]
  - PRURITUS [None]
